FAERS Safety Report 9816886 (Version 1)
Quarter: 2014Q1

REPORT INFORMATION
  Report Type: Spontaneous
  Country: US (occurrence: US)
  Receive Date: 20140114
  Receipt Date: 20140114
  Transmission Date: 20141002
  Serious: No
  Sender: FDA-Public Use
  Company Number: US-BAUSCH-BL-2013-006071

PATIENT
  Age: 70 Year
  Sex: Male

DRUGS (3)
  1. LOTEMAX (LOTEPREDNOL ETABONATE OPHTHALMIC GEL 0.5%) [Suspect]
     Indication: EYE INFECTION
     Dosage: 1 DROP; THREE TIMES DAILY; RIGHT EYE
     Route: 047
     Dates: start: 20130912, end: 20131012
  2. NEXIUM [Concomitant]
     Indication: GASTROOESOPHAGEAL REFLUX DISEASE
  3. PLAQUENIL [Concomitant]
     Indication: SYSTEMIC LUPUS ERYTHEMATOSUS

REACTIONS (2)
  - Off label use [Recovered/Resolved]
  - Chromaturia [Recovered/Resolved]
